FAERS Safety Report 7049138-3 (Version None)
Quarter: 2010Q4

REPORT INFORMATION
  Report Type: 
  Country: None (occurrence: None)
  Receive Date: 20101012
  Receipt Date: 20100927
  Transmission Date: 20110411
  Serious: Yes (Other)
  Sender: FDA-Public Use
  Company Number: GER/UKI/10/0016055

PATIENT
  Sex: Female

DRUGS (12)
  1. ALENDRONIC ACID (ALENDRONIC ACID) [Suspect]
     Indication: PRODUCT USED FOR UNKNOWN INDICATION
     Dosage: 70 MG, ORAL
     Route: 048
     Dates: start: 20100902, end: 20100916
  2. E45 ITCH RELIEF (E45 ITCH RELIEF) [Concomitant]
  3. ASPIRIN [Concomitant]
  4. BUDESONIDE [Concomitant]
  5. COLECALCIFEROL (COLECALCIFEROL) [Concomitant]
  6. FORMOTEROL (FORMOTEROL) [Concomitant]
  7. ISPAGHULA HUSK (PLANTAGO OVATA HUSK) [Concomitant]
  8. LATANOPROST [Concomitant]
  9. LERCANIDIPINE [Concomitant]
  10. RISEDRONATE (RISEDROMATE SODIUM) [Concomitant]
  11. ROCALTROL [Concomitant]
  12. SALBUTAMOL (SALBUTAMOL) [Concomitant]

REACTIONS (2)
  - DYSPHONIA [None]
  - PALPITATIONS [None]
